FAERS Safety Report 7335946-8 (Version None)
Quarter: 2011Q1

REPORT INFORMATION
  Report Type: 
  Country: None (occurrence: None)
  Receive Date: 20110307
  Receipt Date: 20110228
  Transmission Date: 20110831
  Serious: Yes (Hospitalization, Other)
  Sender: FDA-Public Use
  Company Number: JP-PFIZER INC-2011033766

PATIENT
  Age: 68 Year
  Sex: Male

DRUGS (5)
  1. GASTER [Concomitant]
  2. AZULFIDINE [Suspect]
     Indication: RHEUMATOID ARTHRITIS
     Dosage: 1000 MG, 1X/DAY
     Route: 048
     Dates: start: 20090601, end: 20090801
  3. SELBEX [Concomitant]
     Dosage: UNK
     Dates: start: 20090622
  4. JUZENTAIHOTO [Concomitant]
     Dosage: UNK
     Dates: start: 20090622
  5. CLINORIL [Concomitant]
     Dosage: UNK
     Dates: start: 20090622

REACTIONS (1)
  - LIVER DISORDER [None]
